FAERS Safety Report 5383867-2 (Version None)
Quarter: 2007Q3

REPORT INFORMATION
  Report Type: 
  Country: None (occurrence: None)
  Receive Date: 20070711
  Receipt Date: 20070702
  Transmission Date: 20080115
  Serious: Yes (Other)
  Sender: FDA-Public Use
  Company Number: US-JNJFOC-20070503501

PATIENT
  Sex: Male
  Weight: 99.79 kg

DRUGS (16)
  1. FENTANYL TRANSDERMAL SYSTEM [Suspect]
     Indication: PAIN
     Route: 062
  2. EFFEXOR [Concomitant]
     Indication: DEPRESSION
     Route: 048
  3. GLUCOPHAGE [Concomitant]
     Route: 048
  4. PREDNISONE [Concomitant]
     Indication: ARTHRITIS
     Route: 048
  5. ZETIA [Concomitant]
     Route: 048
  6. MICRO-K [Concomitant]
     Route: 048
  7. LASIX [Concomitant]
     Route: 048
  8. DIOVAN [Concomitant]
     Indication: BLOOD PRESSURE
     Route: 048
  9. ACTOS [Concomitant]
     Route: 048
  10. AMDUR [Concomitant]
     Route: 048
  11. FLEXERIL [Concomitant]
     Indication: MUSCLE SPASMS
     Route: 048
  12. PERCOCET [Concomitant]
     Indication: PAIN
     Route: 048
  13. CENTRIUM [Concomitant]
     Route: 048
  14. ALBUTEROL [Concomitant]
     Route: 055
  15. SPIRIVA [Concomitant]
     Route: 048
  16. LANTUS [Concomitant]
     Route: 055

REACTIONS (2)
  - HALLUCINATION [None]
  - HERNIA [None]
